FAERS Safety Report 9780584 (Version 1)
Quarter: 2013Q4

REPORT INFORMATION
  Report Type: Report from Study
  Country: BE (occurrence: BE)
  Receive Date: 20131224
  Receipt Date: 20131224
  Transmission Date: 20140711
  Serious: Yes (Death)
  Sender: FDA-Public Use
  Company Number: BE-ROCHE-1321609

PATIENT
  Age: 80 Year
  Sex: Male
  Weight: 78 kg

DRUGS (13)
  1. BEVACIZUMAB [Suspect]
     Indication: COLORECTAL CANCER
     Route: 042
     Dates: start: 20120321, end: 20121031
  2. IRINOTECAN [Suspect]
     Indication: COLORECTAL CANCER
     Route: 042
     Dates: start: 20120321, end: 20121128
  3. FOLIC ACID [Suspect]
     Indication: COLORECTAL CANCER
     Route: 042
     Dates: start: 20120321, end: 20121128
  4. 5-FLUOROURACIL [Suspect]
     Indication: COLORECTAL CANCER
     Route: 040
     Dates: start: 20120321, end: 20121128
  5. 5-FLUOROURACIL [Suspect]
     Route: 041
     Dates: start: 20120321, end: 20121128
  6. COVERSYL [Concomitant]
     Indication: HYPERTENSION
     Route: 048
  7. PANTOMED (BELGIUM) [Concomitant]
     Indication: ULCER
     Route: 048
  8. CORDARONE [Concomitant]
     Indication: ARRHYTHMIA
     Route: 048
  9. ASAFLOW [Concomitant]
     Indication: CARDIAC DISORDER
     Route: 048
  10. CORUNO [Concomitant]
     Indication: MYOCARDIAL INFARCTION
     Route: 048
  11. BURINEX [Concomitant]
     Indication: FLUID RETENTION
     Route: 048
  12. ZOCOR [Concomitant]
     Indication: DYSLIPIDAEMIA
     Route: 048
  13. ALLOPURINOL [Concomitant]
     Route: 048

REACTIONS (2)
  - Asthenia [Fatal]
  - General physical health deterioration [Fatal]
